FAERS Safety Report 6168079-7 (Version None)
Quarter: 2009Q2

REPORT INFORMATION
  Report Type: 
  Country: None (occurrence: None)
  Receive Date: 20090423
  Receipt Date: 20090423
  Transmission Date: 20091009
  Serious: Yes (Other)
  Sender: FDA-Public Use
  Company Number: None

PATIENT
  Sex: Male
  Weight: 105.6881 kg

DRUGS (2)
  1. SIMVASTATIN [Suspect]
     Indication: CARDIAC DISORDER
     Dosage: 1/2 TABLET DAILY
     Dates: start: 20090207, end: 20090212
  2. SIMVASTATIN [Suspect]
     Indication: ROUTINE HEALTH MAINTENANCE
     Dosage: 1/2 TABLET DAILY
     Dates: start: 20090207, end: 20090212

REACTIONS (4)
  - JOINT SWELLING [None]
  - MYALGIA [None]
  - OEDEMA PERIPHERAL [None]
  - TREMOR [None]
